FAERS Safety Report 22954094 (Version 2)
Quarter: 2024Q3

REPORT INFORMATION
  Report Type: Report from Study
  Country: TR (occurrence: TR)
  Receive Date: 20230918
  Receipt Date: 20240829
  Transmission Date: 20241017
  Serious: Yes (Death, Other)
  Sender: ABBVIE
  Company Number: TR-ABBVIE-5408474

PATIENT
  Sex: Male
  Weight: 52 kg

DRUGS (4)
  1. CARBIDOPA\LEVODOPA [Suspect]
     Active Substance: CARBIDOPA\LEVODOPA
     Indication: Parkinson^s disease
     Dosage: MORNING DOSE (ML): 7.80 CONTINUOUS DOSE (ML): 2.60 EXTRA DOSE (ML): 3.00
     Route: 050
     Dates: start: 20190319
  2. CARBIDOPA\LEVODOPA [Suspect]
     Active Substance: CARBIDOPA\LEVODOPA
  3. BENSERAZIDE HYDROCHLORIDE\LEVODOPA [Concomitant]
     Active Substance: BENSERAZIDE HYDROCHLORIDE\LEVODOPA
     Indication: Parkinson^s disease
     Dosage: FORM STRENGTH: 125 MG
     Route: 048
     Dates: start: 2018
  4. Beloc [Concomitant]
     Indication: Coronary artery disease
     Dosage: FORM STRENGTH: 50 MG
     Route: 048
     Dates: start: 1990

REACTIONS (2)
  - Lung neoplasm malignant [Fatal]
  - Laryngeal cancer [Not Recovered/Not Resolved]
